FAERS Safety Report 17277314 (Version 1)
Quarter: 2020Q1

REPORT INFORMATION
  Report Type: Spontaneous
  Country: US (occurrence: US)
  Receive Date: 20191226
  Receipt Date: 20191226
  Transmission Date: 20200409
  Serious: No
  Sender: FDA-Public Use
  Company Number: None

PATIENT
  Age: 17 Year
  Sex: Male

DRUGS (11)
  1. PROAIR HFA [Concomitant]
     Active Substance: ALBUTEROL SULFATE
  2. CEFDINIR. [Concomitant]
     Active Substance: CEFDINIR
  3. PHYTONADIOINE [Concomitant]
  4. MULTIVIT [Concomitant]
     Active Substance: VITAMINS
  5. ZYRTEC [Concomitant]
     Active Substance: CETIRIZINE HYDROCHLORIDE
  6. FLONASE [Concomitant]
     Active Substance: FLUTICASONE PROPIONATE
  7. SOC CHL 0.9% [Concomitant]
  8. AMOX/K CLAV [Concomitant]
     Active Substance: AMOXICILLIN\CLAVULANATE POTASSIUM
  9. TRIKAFTA [Suspect]
     Active Substance: ELEXACAFTOR\IVACAFTOR\TEZACAFTOR
     Indication: CYSTIC FIBROSIS
     Dosage: ?          OTHER DOSE:2 TABS (ORANGE)1 TAB (BLUE);OTHER FREQUENCY:IN AM IN PM;?
     Route: 048
     Dates: start: 20191107
  10. FLUOXETINE [Concomitant]
     Active Substance: FLUOXETINE HYDROCHLORIDE
  11. PULMOZYME [Concomitant]
     Active Substance: DORNASE ALFA

REACTIONS (8)
  - Anxiety [None]
  - Fatigue [None]
  - Diarrhoea [None]
  - Rhinorrhoea [None]
  - Extra dose administered [None]
  - Accidental exposure to product [None]
  - Headache [None]
  - Abdominal discomfort [None]

NARRATIVE: CASE EVENT DATE: 20191225
